FAERS Safety Report 16531441 (Version 2)
Quarter: 2019Q3

REPORT INFORMATION
  Report Type: Spontaneous
  Country: US (occurrence: US)
  Receive Date: 20190705
  Receipt Date: 20190724
  Transmission Date: 20191004
  Serious: No
  Sender: FDA-Public Use
  Company Number: US-ASTRAZENECA-2019SE85670

PATIENT
  Sex: Female

DRUGS (2)
  1. BYDUREON [Suspect]
     Active Substance: EXENATIDE
     Indication: TYPE 2 DIABETES MELLITUS
     Dosage: PEN, 2 MG, ONCE A WEEK
     Route: 058
  2. BYDUREON [Suspect]
     Active Substance: EXENATIDE
     Indication: TYPE 2 DIABETES MELLITUS
     Dosage: SDT, 2 MG, ONCE A WEEK
     Route: 058

REACTIONS (7)
  - Intentional product misuse [Unknown]
  - Injection site bruising [Unknown]
  - Injection site extravasation [Unknown]
  - Product dose omission [Not Recovered/Not Resolved]
  - Injection site pain [Unknown]
  - Injection site haemorrhage [Unknown]
  - Device leakage [Unknown]
